FAERS Safety Report 16478454 (Version 1)
Quarter: 2019Q2

REPORT INFORMATION
  Report Type: Spontaneous
  Country: DE (occurrence: DE)
  Receive Date: 20190626
  Receipt Date: 20190626
  Transmission Date: 20190711
  Serious: Yes (Disabling, Other)
  Sender: FDA-Public Use
  Company Number: DE-MYLANLABS-2019M1058124

PATIENT
  Age: 69 Year
  Sex: Male
  Weight: 72 kg

DRUGS (5)
  1. HYDROCORTISONE. [Suspect]
     Active Substance: HYDROCORTISONE
     Dosage: TWICE IN 2 YEARS OVER 3 DAYS
     Route: 065
  2. DEXAMETHASON                       /00016001/ [Suspect]
     Active Substance: DEXAMETHASONE
     Indication: SEASONAL ALLERGY
     Dosage: UNK
     Route: 065
  3. TRIAMCINOLON /00031901/ [Suspect]
     Active Substance: TRIAMCINOLONE
     Indication: SEASONAL ALLERGY
     Dosage: USED TWICE IN TWO YEARS
     Route: 030
  4. HYDROCORTISONE. [Suspect]
     Active Substance: HYDROCORTISONE
     Indication: SEASONAL ALLERGY
     Dosage: SINGLE-DOSE EFFECT OCCURS FROM A DOSE OF 10 MG HYDROCORTISONE
     Route: 048
  5. HYDROCORTISONE. [Suspect]
     Active Substance: HYDROCORTISONE
     Dosage: TWICE IN 2 YEARS OVER 3 DAYS
     Route: 065

REACTIONS (3)
  - Retinal scar [Recovered/Resolved with Sequelae]
  - Visual impairment [Recovered/Resolved with Sequelae]
  - Retinal oedema [Recovered/Resolved with Sequelae]

NARRATIVE: CASE EVENT DATE: 1986
